FAERS Safety Report 14952061 (Version 1)
Quarter: 2018Q2

REPORT INFORMATION
  Report Type: Spontaneous
  Country: FR (occurrence: FR)
  Receive Date: 20180530
  Receipt Date: 20180530
  Transmission Date: 20180711
  Serious: Yes (Hospitalization)
  Sender: FDA-Public Use
  Company Number: FR-PFIZER INC-2018216119

PATIENT
  Age: 33 Year
  Sex: Male
  Weight: 93 kg

DRUGS (3)
  1. DALACINE [Suspect]
     Active Substance: CLINDAMYCIN HYDROCHLORIDE
     Indication: INFECTION
     Dosage: 2700 MG, 1X/DAY
     Route: 048
     Dates: start: 20180329, end: 20180407
  2. FUCIDINE [Suspect]
     Active Substance: FUSIDIC ACID
     Indication: INFECTION
     Dosage: 1500 MG, 1X/DAY
     Route: 048
     Dates: start: 20180329, end: 20180407
  3. TARGOCID [Suspect]
     Active Substance: TEICOPLANIN
     Indication: INFECTION
     Dosage: 400 MG, 1X/DAY
     Route: 042
     Dates: start: 20180402, end: 20180406

REACTIONS (2)
  - Pyrexia [Recovered/Resolved]
  - Rash [Recovered/Resolved]

NARRATIVE: CASE EVENT DATE: 20180406
